FAERS Safety Report 8185707-5 (Version None)
Quarter: 2012Q1

REPORT INFORMATION
  Report Type: 
  Country: None (occurrence: None)
  Receive Date: 20120305
  Receipt Date: 20120223
  Transmission Date: 20120608
  Serious: Yes (Other)
  Sender: FDA-Public Use
  Company Number: GB-ELI_LILLY_AND_COMPANY-GB201202007109

PATIENT
  Sex: Male

DRUGS (1)
  1. BYETTA [Suspect]
     Dosage: UNK, UNKNOWN
     Dates: start: 20070101

REACTIONS (2)
  - MYOCARDIAL INFARCTION [None]
  - WEIGHT DECREASED [None]
